FAERS Safety Report 19207153 (Version 1)
Quarter: 2021Q2

REPORT INFORMATION
  Report Type: Spontaneous
  Country: US (occurrence: US)
  Receive Date: 20210503
  Receipt Date: 20210503
  Transmission Date: 20210717
  Serious: No
  Sender: FDA-Public Use
  Company Number: US-BAYER-2021-134830

PATIENT
  Age: 23 Year
  Sex: Female

DRUGS (3)
  1. ALEVE [Suspect]
     Active Substance: NAPROXEN SODIUM
     Indication: PAIN
     Dosage: 4 DF, Q1HR
     Route: 048
     Dates: start: 2020, end: 20210502
  2. SPIRONOLACTONE. [Concomitant]
     Active Substance: SPIRONOLACTONE
  3. MINOCYCLINE [Concomitant]
     Active Substance: MINOCYCLINE HYDROCHLORIDE

REACTIONS (4)
  - Incorrect dose administered [Unknown]
  - Abdominal pain upper [Unknown]
  - Expired product administered [None]
  - Gastrointestinal pain [Unknown]

NARRATIVE: CASE EVENT DATE: 2021
